FAERS Safety Report 8489439-5 (Version None)
Quarter: 2012Q3

REPORT INFORMATION
  Report Type: 
  Country: None (occurrence: None)
  Receive Date: 20120705
  Receipt Date: 20120629
  Transmission Date: 20120928
  Serious: No
  Sender: FDA-Public Use
  Company Number: US-PFIZER INC-2012138800

PATIENT
  Sex: Female
  Weight: 54.4 kg

DRUGS (2)
  1. AUGMENTIN '125' [Concomitant]
     Indication: PROPHYLAXIS
     Dosage: UNK
  2. HYDROCORTISONE ACETATE [Suspect]
     Indication: ERYTHEMA
     Dosage: UNK
     Dates: start: 20100601, end: 20100601

REACTIONS (1)
  - DRUG INEFFECTIVE [None]
